FAERS Safety Report 9030541 (Version 3)
Quarter: 2013Q1

REPORT INFORMATION
  Report Type: Spontaneous
  Country: US (occurrence: US)
  Receive Date: 20130122
  Receipt Date: 20130315
  Transmission Date: 20140127
  Serious: Yes (Hospitalization, Congenital Anomaly, Other)
  Sender: FDA-Public Use
  Company Number: US-PFIZER INC-2011308677

PATIENT
  Sex: Male
  Weight: 3 kg

DRUGS (15)
  1. ZOLOFT [Suspect]
     Dosage: UNK
     Route: 064
     Dates: start: 20040406, end: 20040919
  2. ZOLOFT [Suspect]
     Dosage: 50 MG, UNK
     Route: 064
     Dates: start: 20050324
  3. VICODIN [Concomitant]
     Dosage: UNK
     Route: 064
     Dates: start: 20050219
  4. PRENATAL VITAMINS [Concomitant]
     Dosage: UNK
     Route: 064
  5. YASMIN [Concomitant]
     Dosage: UNK
     Route: 064
  6. ADVAIR [Concomitant]
     Dosage: UNK
     Route: 064
  7. NASONEX [Concomitant]
     Dosage: UNK
     Route: 064
  8. ALBUTEROL [Concomitant]
     Dosage: UNK
     Route: 064
  9. CLARINEX [Concomitant]
     Dosage: UNK
     Route: 064
  10. DIFLUCAN [Concomitant]
     Dosage: UNK
     Route: 064
  11. IBUPROFEN [Concomitant]
     Dosage: 800 MG, UNK
     Route: 064
  12. PROMETHAZINE [Concomitant]
     Dosage: UNK
     Route: 064
  13. PRENATE ELITE [Concomitant]
     Dosage: UNK
     Route: 064
  14. CORTANE-B [Concomitant]
     Dosage: UNK
     Route: 064
  15. NUTRISPIRE [Concomitant]
     Dosage: UNK
     Route: 064

REACTIONS (6)
  - Maternal exposure timing unspecified [Unknown]
  - Congenital aortic valve stenosis [Unknown]
  - Patent ductus arteriosus [Unknown]
  - Congenital mitral valve incompetence [Unknown]
  - Congenital anomaly [Unknown]
  - Atrial septal defect [Unknown]
